FAERS Safety Report 16328057 (Version 1)
Quarter: 2019Q2

REPORT INFORMATION
  Report Type: Spontaneous
  Country: US (occurrence: US)
  Receive Date: 20190518
  Receipt Date: 20190518
  Transmission Date: 20190711
  Serious: No
  Sender: FDA-Public Use
  Company Number: US-BION-007837

PATIENT
  Sex: Male
  Weight: 26.31 kg

DRUGS (1)
  1. CLOBAZAM. [Suspect]
     Active Substance: CLOBAZAM
     Indication: EPILEPSY
     Dosage: STRENGTH: 2.5 MG/ML

REACTIONS (2)
  - Product physical consistency issue [Unknown]
  - Wrong technique in product usage process [Not Recovered/Not Resolved]
